FAERS Safety Report 15410651 (Version 1)
Quarter: 2018Q3

REPORT INFORMATION
  Report Type: Spontaneous
  Country: US (occurrence: US)
  Receive Date: 20180919
  Receipt Date: 20180919
  Transmission Date: 20181010
  Serious: Yes (Other)
  Sender: FDA-Public Use
  Company Number: None

PATIENT
  Age: 70 Year
  Sex: Male
  Weight: 78.3 kg

DRUGS (10)
  1. METFORMIN [Concomitant]
     Active Substance: METFORMIN HYDROCHLORIDE
  2. TAMSULOSIN [Concomitant]
     Active Substance: TAMSULOSIN
  3. FINASTERIDE. [Concomitant]
     Active Substance: FINASTERIDE
  4. ATENOLOL. [Concomitant]
     Active Substance: ATENOLOL
  5. MELATONIN [Concomitant]
     Active Substance: MELATONIN
  6. DOCUSATE [Concomitant]
     Active Substance: DOCUSATE
  7. CAPECITABINE. [Suspect]
     Active Substance: CAPECITABINE
     Indication: GASTRIC CANCER
     Route: 048
     Dates: start: 20180810
  8. ASPIRIN. [Concomitant]
     Active Substance: ASPIRIN
  9. CITALOPRAM [Concomitant]
     Active Substance: CITALOPRAM HYDROBROMIDE
  10. OMEPRAZOLE. [Concomitant]
     Active Substance: OMEPRAZOLE

REACTIONS (1)
  - Pneumonia [None]
